FAERS Safety Report 23082727 (Version 1)
Quarter: 2023Q4

REPORT INFORMATION
  Report Type: Spontaneous
  Country: US (occurrence: US)
  Receive Date: 20231019
  Receipt Date: 20231019
  Transmission Date: 20240110
  Serious: Yes (Other)
  Sender: FDA-Public Use
  Company Number: US-AMNEAL PHARMACEUTICALS-2023-AMRX-03632

PATIENT
  Age: 43 Year
  Sex: Male

DRUGS (4)
  1. CARVEDILOL PHOSPHATE [Suspect]
     Active Substance: CARVEDILOL PHOSPHATE
     Indication: Product used for unknown indication
     Dosage: 25 MG, BID
  2. GLUCAGON [Suspect]
     Active Substance: GLUCAGON\GLUCAGON HYDROCHLORIDE\WATER
     Indication: Product used for unknown indication
     Dosage: 1 MG
     Route: 030
  3. GLUCAGON [Suspect]
     Active Substance: GLUCAGON\GLUCAGON HYDROCHLORIDE\WATER
     Dosage: 2 MG
  4. ATROPINE [Suspect]
     Active Substance: ATROPINE
     Indication: Product used for unknown indication
     Dosage: 1 MG
     Route: 065

REACTIONS (1)
  - BRASH syndrome [Recovering/Resolving]
